FAERS Safety Report 16576825 (Version 1)
Quarter: 2019Q3

REPORT INFORMATION
  Report Type: Spontaneous
  Country: US (occurrence: US)
  Receive Date: 20190715
  Receipt Date: 20190715
  Transmission Date: 20191004
  Serious: Yes (Life-Threatening, Hospitalization)
  Sender: FDA-Public Use
  Company Number: None

PATIENT
  Age: 58 Year
  Sex: Male
  Weight: 78.75 kg

DRUGS (22)
  1. DIAZEPAM. [Concomitant]
     Active Substance: DIAZEPAM
  2. ROPINIROLE. [Concomitant]
     Active Substance: ROPINIROLE
  3. LOPERAMIDE [Suspect]
     Active Substance: LOPERAMIDE
     Indication: DIARRHOEA
     Route: 048
  4. ATENOLOL. [Concomitant]
     Active Substance: ATENOLOL
  5. HYOSCYAMINE. [Concomitant]
     Active Substance: HYOSCYAMINE
  6. THEOPHYLLINE [Concomitant]
     Active Substance: THEOPHYLLINE ANHYDROUS
  7. FLUTICOSONE [Concomitant]
  8. LISINOPRIL. [Concomitant]
     Active Substance: LISINOPRIL
  9. AMBIEN [Concomitant]
     Active Substance: ZOLPIDEM TARTRATE
  10. CABIDOPA-LEVODOPA [Concomitant]
  11. MECLIZINE [Concomitant]
     Active Substance: MECLIZINE HYDROCHLORIDE
  12. ALBUTEROL. [Concomitant]
     Active Substance: ALBUTEROL
  13. NITROSTAT [Concomitant]
     Active Substance: NITROGLYCERIN
  14. LIVALO [Concomitant]
     Active Substance: PITAVASTATIN CALCIUM
  15. TESTOSTERONE IM [Concomitant]
  16. ASA [Concomitant]
     Active Substance: ASPIRIN
  17. COENZYME Q10 [Concomitant]
     Active Substance: UBIDECARENONE
  18. MONTELUKAST [Concomitant]
     Active Substance: MONTELUKAST SODIUM
  19. ZOFRAN [Concomitant]
     Active Substance: ONDANSETRON HYDROCHLORIDE
  20. BREO ELLIPTA [Concomitant]
     Active Substance: FLUTICASONE FUROATE\VILANTEROL TRIFENATATE
  21. BUPROPION. [Concomitant]
     Active Substance: BUPROPION
  22. NEXIUM [Concomitant]
     Active Substance: ESOMEPRAZOLE MAGNESIUM

REACTIONS (4)
  - Lethargy [None]
  - Drug abuse [None]
  - Incorrect dose administered [None]
  - Respiratory acidosis [None]

NARRATIVE: CASE EVENT DATE: 20190713
